FAERS Safety Report 5773237-7 (Version None)
Quarter: 2008Q2

REPORT INFORMATION
  Report Type: 
  Country: None (occurrence: None)
  Receive Date: 20080616
  Receipt Date: 20080609
  Transmission Date: 20081010
  Serious: Yes (Hospitalization, Other)
  Sender: FDA-Public Use
  Company Number: BR-BAYER-200814869LA

PATIENT
  Age: 56 Year
  Sex: Male

DRUGS (1)
  1. BETAFERON [Suspect]
     Indication: MULTIPLE SCLEROSIS
     Dosage: UNIT DOSE: 1 ML
     Route: 058
     Dates: start: 19980101, end: 20080604

REACTIONS (3)
  - LOWER LIMB FRACTURE [None]
  - OPEN FRACTURE [None]
  - ROAD TRAFFIC ACCIDENT [None]
